FAERS Safety Report 11272162 (Version 1)
Quarter: 2015Q3

REPORT INFORMATION
  Report Type: Spontaneous
  Country: KR (occurrence: KR)
  Receive Date: 20150715
  Receipt Date: 20150715
  Transmission Date: 20151125
  Serious: Yes (Hospitalization)
  Sender: FDA-Public Use
  Company Number: KR-AMGEN-KORCT2015070231

PATIENT
  Age: 56 Year
  Sex: Male
  Weight: 73.2 kg

DRUGS (5)
  1. ETOPOSIDE. [Concomitant]
     Active Substance: ETOPOSIDE
     Dosage: 54.9 MG, UNK
     Route: 042
     Dates: start: 20150530, end: 20150530
  2. CYTARABINE. [Concomitant]
     Active Substance: CYTARABINE
     Dosage: 1.83 G, UNK
     Route: 042
     Dates: start: 20150531, end: 20150531
  3. G-LASTA [Suspect]
     Active Substance: PEGFILGRASTIM
     Indication: FEBRILE NEUTROPENIA
     Dosage: 6 MG, 1X/3WEEKS
     Route: 058
     Dates: start: 20150601, end: 20150601
  4. CISPLATIN. [Concomitant]
     Active Substance: CISPLATIN
     Dosage: 45.75 MG, UNK
     Route: 042
     Dates: start: 20150530, end: 20150530
  5. METHYLPREDNISOLONE. [Concomitant]
     Active Substance: METHYLPREDNISOLONE
     Dosage: 500 MG, UNK
     Route: 042
     Dates: start: 20150530, end: 20150530

REACTIONS (1)
  - Febrile neutropenia [Recovered/Resolved]

NARRATIVE: CASE EVENT DATE: 20150604
